FAERS Safety Report 5285437-3 (Version None)
Quarter: 2007Q1

REPORT INFORMATION
  Report Type: 
  Country: None (occurrence: None)
  Receive Date: 20070328
  Receipt Date: 20070315
  Transmission Date: 20070707
  Serious: Yes (Hospitalization)
  Sender: FDA-Public Use
  Company Number: 2007BI006036

PATIENT
  Sex: Female

DRUGS (1)
  1. AVONEX [Suspect]
     Indication: MULTIPLE SCLEROSIS
     Dosage: IM
     Route: 030

REACTIONS (12)
  - CHEST PAIN [None]
  - EXOSTOSIS [None]
  - GAIT DISTURBANCE [None]
  - INJECTION SITE PAIN [None]
  - MUSCLE SPASMS [None]
  - MUSCULAR WEAKNESS [None]
  - PARAESTHESIA [None]
  - PNEUMONIA [None]
  - PSORIASIS [None]
  - SCOTOMA [None]
  - SLEEP APNOEA SYNDROME [None]
  - VISION BLURRED [None]
